FAERS Safety Report 18854670 (Version 1)
Quarter: 2021Q1

REPORT INFORMATION
  Report Type: Spontaneous
  Country: MX (occurrence: MX)
  Receive Date: 20210205
  Receipt Date: 20210205
  Transmission Date: 20210420
  Serious: Yes (Death, Other)
  Sender: FDA-Public Use
  Company Number: MX-BAYER-2021-030994

PATIENT
  Age: 62 Year
  Sex: Male

DRUGS (1)
  1. NEXAVAR [Suspect]
     Active Substance: SORAFENIB
     Indication: HEPATOCELLULAR CARCINOMA
     Dosage: 400 MG, BID
     Route: 048
     Dates: start: 20201231, end: 20210117

REACTIONS (15)
  - Pain [Recovering/Resolving]
  - Hepatic cancer [Fatal]
  - Infrequent bowel movements [None]
  - Pneumonia [Recovered/Resolved]
  - Fatigue [Not Recovered/Not Resolved]
  - General physical health deterioration [Not Recovered/Not Resolved]
  - Oropharyngeal discomfort [Recovering/Resolving]
  - Melaena [None]
  - Dry throat [Recovered/Resolved]
  - Hypersomnia [Not Recovered/Not Resolved]
  - Productive cough [Recovered/Resolved]
  - Pyrexia [Recovered/Resolved]
  - Hepatic cirrhosis [Fatal]
  - Nausea [Recovered/Resolved]
  - Oropharyngeal pain [Recovering/Resolving]

NARRATIVE: CASE EVENT DATE: 202101
